FAERS Safety Report 8942438 (Version 2)
Quarter: 2012Q4

REPORT INFORMATION
  Report Type: 
  Country: US (occurrence: US)
  Receive Date: 20121204
  Receipt Date: 20121207
  Transmission Date: 20130627
  Serious: Yes (Hospitalization, Other)
  Sender: FDA-Public Use
  Company Number: US-SANOFI-AVENTIS-2012SA088361

PATIENT
  Age: 63 Year
  Sex: Female
  Weight: 56.69 kg

DRUGS (24)
  1. PLAVIX [Suspect]
     Indication: TIA
     Route: 048
     Dates: start: 20080613, end: 20120929
  2. PLAVIX [Suspect]
     Indication: STENT PLACEMENT
     Route: 048
     Dates: start: 20080613, end: 20120929
  3. PLAVIX [Suspect]
     Indication: TIA
     Route: 048
     Dates: start: 20121120
  4. PLAVIX [Suspect]
     Indication: STENT PLACEMENT
     Route: 048
     Dates: start: 20121120
  5. ASPIRIN [Suspect]
     Indication: DIVERTICULOSIS
     Route: 065
     Dates: end: 20120929
  6. ASPIRIN [Suspect]
     Indication: DIVERTICULOSIS
     Route: 065
     Dates: start: 2012
  7. METFORMIN [Suspect]
     Route: 065
  8. MULTIVITAMINS [Concomitant]
  9. THEOPHYLLINE [Concomitant]
  10. LOTENSIN [Concomitant]
  11. COREG [Concomitant]
  12. PROTONIX [Concomitant]
     Indication: DIARRHEA
  13. ZOCOR [Concomitant]
  14. FERROUS SULFATE [Concomitant]
  15. ELAVIL [Concomitant]
  16. MIRALAX [Concomitant]
     Dosage: q4 days
  17. ZYRTEC [Concomitant]
  18. NITRO [Concomitant]
  19. DIFLUCAN [Concomitant]
     Indication: YEAST INFECTION
  20. VISTARIL [Concomitant]
  21. SPIRIVA [Concomitant]
  22. ALBUTEROL [Concomitant]
     Indication: COPD
     Dosage: inhaler solution
  23. VICODIN [Concomitant]
  24. ATROVENT [Concomitant]
     Dosage: inhaler

REACTIONS (13)
  - Irritable bowel syndrome [Unknown]
  - Cholecystectomy [Unknown]
  - Carotid artery occlusion [Unknown]
  - Chest pain [Recovered/Resolved]
  - Faeces discoloured [Unknown]
  - Diverticulum intestinal haemorrhagic [Recovered/Resolved]
  - Haematochezia [Unknown]
  - Anaemia [Unknown]
  - Stent placement [Unknown]
  - Asthenia [Unknown]
  - Dizziness [Unknown]
  - Diarrhoea [Unknown]
  - Contusion [Unknown]
